FAERS Safety Report 9988733 (Version 1)
Quarter: 2013Q4

REPORT INFORMATION
  Report Type: Spontaneous
  Country: US (occurrence: None)
  Receive Date: 20131015
  Receipt Date: 20131015
  Transmission Date: 20140711
  Serious: Yes (Death)
  Sender: FDA-Public Use
  Company Number: P0602

PATIENT
  Age: 76 Year
  Sex: Male

DRUGS (25)
  1. SIPULEUCEL-T [Suspect]
     Indication: PROSTATE CANCER
     Route: 042
     Dates: start: 20120730, end: 20120730
  2. ABIRATERONE (ABIRATERONE) [Concomitant]
  3. PREDNISONE (PREDNISONE) [Concomitant]
  4. ZINC [Concomitant]
  5. SELENIUM (SELENIUM) [Concomitant]
  6. VITAMIN C (ASCORBIC ACID) [Concomitant]
  7. CHLORLPHYLL (CHLORPOPHYLL) [Concomitant]
  8. IODINE (IODINE) [Concomitant]
  9. VITAMIN D3 (COLECALCIFEROL) [Concomitant]
  10. VITAMIN B COMPLEX (VITAMIN B COMPLEX) [Concomitant]
  11. ECHINACEA PURPUREA [Concomitant]
  12. SPIRULINA (SPIRULINA SPP) [Concomitant]
  13. OLIVE LEAF (OLEA EUROPAEA LEAF EXTRACT) [Concomitant]
  14. CO Q 10 (UBIDECARENONE) [Concomitant]
  15. ADVIL (IBUPROFEN) (TABLET) [Concomitant]
  16. ZOLADEX (GOSERELIN) [Concomitant]
  17. OXYCODONE/APAP (PARACETAMOL, OXYCODOE  HYDROCHLORIDE) [Concomitant]
  18. HYDROMORPHONE (HYDROMORPHONE) [Concomitant]
  19. CITRATE OF MAGNESIA (MAGNESIUM CITRATE) [Concomitant]
  20. FENTANYL (FENTANYL) [Concomitant]
  21. CYCLOBENZAPRINE HCL (CYCLOBENZAPRINE HYDROCHLORIDE) [Concomitant]
  22. LACTULOSE (LACTULOSE) [Concomitant]
  23. FUROSEMIDE (FUROSEMIDE) [Concomitant]
  24. POTASSIUM CHLORIDE ER (POTASSIUM CHLORIDE) [Concomitant]
  25. PROCHLORPERAZINE (PROCHLORPERAZINE) [Concomitant]

REACTIONS (1)
  - Prostate cancer [None]
